FAERS Safety Report 7323562-3 (Version None)
Quarter: 2011Q1

REPORT INFORMATION
  Report Type: 
  Country: None (occurrence: None)
  Receive Date: 20110301
  Receipt Date: 20110216
  Transmission Date: 20110831
  Serious: Yes (Hospitalization, Other)
  Sender: FDA-Public Use
  Company Number: ES-ELI_LILLY_AND_COMPANY-ES201102004203

PATIENT
  Age: 71 Year
  Sex: Female

DRUGS (11)
  1. NATECAL [Concomitant]
  2. FOSAMAX [Concomitant]
  3. FLOGOTER [Interacting]
     Indication: RHEUMATOID ARTHRITIS
     Dosage: 150 MG, DAILY (1/D)
     Route: 048
     Dates: start: 20100407
  4. EMEPROTON [Concomitant]
  5. PLAVIX [Interacting]
     Indication: THROMBOSIS
     Dosage: 75 MG, UNK
     Route: 048
     Dates: start: 20070801
  6. PARACETAMOL [Concomitant]
  7. ATORVASTATIN [Concomitant]
  8. DAFLON [Concomitant]
  9. MODUS [Concomitant]
  10. PROZAC [Suspect]
     Indication: DEPRESSION
     Dosage: 20 MG, DAILY (1/D)
     Route: 048
  11. HYDROXYCHLOROQUINE [Concomitant]

REACTIONS (4)
  - DRUG INTERACTION [None]
  - GASTROINTESTINAL HAEMORRHAGE [None]
  - LARGE INTESTINAL ULCER [None]
  - DIVERTICULUM INTESTINAL [None]
